FAERS Safety Report 4826033-9 (Version None)
Quarter: 2005Q4

REPORT INFORMATION
  Report Type: 
  Country: None (occurrence: None)
  Receive Date: 20051111
  Receipt Date: 20050414
  Transmission Date: 20060501
  Serious: Yes (Other)
  Sender: FDA-Public Use
  Company Number: US-MERCK-0504USA02879

PATIENT
  Age: 51 Year
  Sex: Female
  Weight: 86 kg

DRUGS (11)
  1. VIOXX [Suspect]
     Indication: ARTHRITIS
     Route: 048
     Dates: start: 19990101, end: 20040101
  2. DIOVAN [Concomitant]
     Indication: HYPERTENSION
     Route: 048
     Dates: start: 19970101
  3. TYLENOL (CAPLET) [Concomitant]
     Route: 048
     Dates: start: 20000101
  4. ESTROGENS (UNSPECIFIED) [Concomitant]
     Indication: HORMONE REPLACEMENT THERAPY
     Route: 048
     Dates: start: 19930101, end: 20020101
  5. ALTACE [Concomitant]
     Indication: HYPERTENSION
     Route: 048
     Dates: start: 19850101, end: 20000101
  6. ALTACE [Concomitant]
     Indication: CARDIAC DISORDER
     Route: 048
     Dates: start: 19850101, end: 20000101
  7. ASPIRIN [Concomitant]
     Indication: OSTEOARTHRITIS
     Route: 048
     Dates: start: 19950101, end: 20021101
  8. BENTYL [Concomitant]
     Indication: FAECES DISCOLOURED
     Route: 048
  9. ACCOLATE [Concomitant]
     Indication: ASTHMA
     Route: 048
  10. XANAX [Concomitant]
     Indication: PEPTIC ULCER
     Route: 048
  11. ZANTAC [Concomitant]
     Route: 048

REACTIONS (10)
  - BLOOD CHOLESTEROL INCREASED [None]
  - BLOOD TRIGLYCERIDES INCREASED [None]
  - FIBROMYALGIA [None]
  - GASTRIC DISORDER [None]
  - GASTRIC ULCER [None]
  - GOUT [None]
  - HEADACHE [None]
  - INTESTINAL POLYP [None]
  - MYOCARDIAL INFARCTION [None]
  - PEPTIC ULCER [None]
